FAERS Safety Report 7286535-5 (Version None)
Quarter: 2011Q1

REPORT INFORMATION
  Report Type: 
  Country: None (occurrence: None)
  Receive Date: 20110210
  Receipt Date: 20110128
  Transmission Date: 20110831
  Serious: Yes (Other)
  Sender: FDA-Public Use
  Company Number: FR-ELI_LILLY_AND_COMPANY-FR201101007457

PATIENT
  Age: 62 Year
  Sex: Male

DRUGS (3)
  1. GEMZAR [Suspect]
     Indication: LUNG CANCER METASTATIC
     Dosage: 1000 MG/M2, 4 WEEK CYCLE (LAST WK REST)
     Route: 065
  2. CARBOPLATIN [Concomitant]
     Indication: LUNG NEOPLASM MALIGNANT
     Dosage: 125 MG/M2, UNK
  3. PREDNISONE [Concomitant]
     Indication: RHEUMATOID ARTHRITIS
     Dosage: 20 MG, DAILY (1/D)

REACTIONS (3)
  - CONGESTIVE CARDIOMYOPATHY [None]
  - EXTREMITY NECROSIS [None]
  - ANAEMIA MACROCYTIC [None]
